FAERS Safety Report 12653624 (Version 2)
Quarter: 2016Q3

REPORT INFORMATION
  Report Type: Spontaneous
  Country: US (occurrence: US)
  Receive Date: 20160815
  Receipt Date: 20160923
  Transmission Date: 20161109
  Serious: No
  Sender: FDA-Public Use
  Company Number: US-ASTRAZENECA-2016SE79992

PATIENT
  Age: 69 Year
  Sex: Female
  Weight: 52.2 kg

DRUGS (4)
  1. ANASTRAZOLE [Suspect]
     Active Substance: ANASTROZOLE
     Indication: BREAST CANCER FEMALE
     Route: 048
     Dates: start: 201604
  2. ANASTRAZOLE [Suspect]
     Active Substance: ANASTROZOLE
     Indication: NEOPLASM MALIGNANT
     Route: 048
     Dates: start: 201604
  3. ANASTRAZOLE [Suspect]
     Active Substance: ANASTROZOLE
     Indication: BREAST CANCER FEMALE
     Route: 048
     Dates: start: 201404, end: 201512
  4. ANASTRAZOLE [Suspect]
     Active Substance: ANASTROZOLE
     Indication: NEOPLASM MALIGNANT
     Route: 048
     Dates: start: 201404, end: 201512

REACTIONS (9)
  - Sciatic nerve injury [Unknown]
  - Arthralgia [Recovered/Resolved]
  - Hepatic enzyme increased [Unknown]
  - Insomnia [Unknown]
  - Abdominal distension [Unknown]
  - Product use issue [Unknown]
  - Malaise [Unknown]
  - Spondylolisthesis [Unknown]
  - Off label use [Unknown]

NARRATIVE: CASE EVENT DATE: 2014
